FAERS Safety Report 7683358 (Version 2)
Quarter: 2013Q3

REPORT INFORMATION
  Report Type: Spontaneous
  Country: US (occurrence: US)
  Receive Date: 20101125
  Receipt Date: 20130910
  Transmission Date: 20140515
  Serious: No
  Sender: FDA-Public Use
  Company Number: US-BIOGENIDEC-2010BI041194

PATIENT
  Age: 51 Year
  Sex: Female

DRUGS (1)
  1. TYSABRI [Suspect]
     Indication: MULTIPLE SCLEROSIS
     Route: 042
     Dates: start: 20100802

REACTIONS (8)
  - Skin induration [Recovered/Resolved]
  - Urinary incontinence [Not Recovered/Not Resolved]
  - Diarrhoea [Recovered/Resolved]
  - Scab [Recovered/Resolved]
  - Urticaria [Recovered/Resolved]
  - Pruritus generalised [Recovered/Resolved]
  - Pruritus [Recovered/Resolved]
  - Nausea [Recovered/Resolved]
